FAERS Safety Report 7000912-9 (Version None)
Quarter: 2010Q3

REPORT INFORMATION
  Report Type: 
  Country: None (occurrence: None)
  Receive Date: 20100920
  Receipt Date: 20100913
  Transmission Date: 20110219
  Serious: Yes (Hospitalization)
  Sender: FDA-Public Use
  Company Number: PHHO2009US03388

PATIENT
  Sex: Male
  Weight: 124.3 kg

DRUGS (6)
  1. BLINDED ACZ885 ACZ+SOLINF+COPD [Suspect]
     Dosage: BLINDED
     Route: 042
     Dates: start: 20080716, end: 20090209
  2. BLINDED NO TREATMENT RECEIVED NOMED [Suspect]
     Dosage: BLINDED
     Route: 042
     Dates: start: 20080716, end: 20090209
  3. BLINDED PLACEBO COMP-PLA+ [Suspect]
     Dosage: BLINDED
     Route: 042
     Dates: start: 20080716, end: 20090209
  4. ALBUTEROL [Concomitant]
  5. ADVAIR DISKUS 100/50 [Concomitant]
  6. THEOPHYLLINE [Concomitant]

REACTIONS (9)
  - BREATH SOUNDS ABNORMAL [None]
  - CHRONIC OBSTRUCTIVE PULMONARY DISEASE [None]
  - DISEASE PROGRESSION [None]
  - DYSPNOEA [None]
  - FACE OEDEMA [None]
  - HYPOXIA [None]
  - OEDEMA PERIPHERAL [None]
  - PNEUMONIA [None]
  - SWELLING [None]
